FAERS Safety Report 14281470 (Version 1)
Quarter: 2017Q4

REPORT INFORMATION
  Report Type: Spontaneous
  Country: US (occurrence: US)
  Receive Date: 20171213
  Receipt Date: 20171213
  Transmission Date: 20180321
  Serious: Yes (Other)
  Sender: FDA-Public Use
  Company Number: US-LUNDBECK-DKLU2041054

PATIENT
  Age: 44 Year
  Sex: Female

DRUGS (1)
  1. NORTHERA [Suspect]
     Active Substance: DROXIDOPA
     Indication: ORTHOSTATIC HYPOTENSION
     Route: 048
     Dates: start: 20140301

REACTIONS (4)
  - Menstrual disorder [Unknown]
  - Hyperpituitarism [Unknown]
  - Trigeminal neuralgia [Unknown]
  - Female sex hormone level abnormal [Unknown]

NARRATIVE: CASE EVENT DATE: 20171206
